FAERS Safety Report 9630739 (Version 1)
Quarter: 2013Q4

REPORT INFORMATION
  Report Type: Spontaneous
  Country: US (occurrence: None)
  Receive Date: 20131016
  Receipt Date: 20131016
  Transmission Date: 20140711
  Serious: Yes (Life-Threatening, Hospitalization, Disabling)
  Sender: FDA-Public Use
  Company Number: None

PATIENT
  Age: 86 Year
  Sex: Male

DRUGS (15)
  1. EYLEA [Suspect]
     Indication: AGE-RELATED MACULAR DEGENERATION
     Dosage: 2MG Q2M  IVT
     Dates: start: 20120831
  2. XARELTO [Concomitant]
  3. POTASSIUM [Concomitant]
  4. PLAVIX [Concomitant]
  5. LISINOPRIL [Concomitant]
  6. KEFLEX [Concomitant]
  7. RANITIDINE [Concomitant]
  8. LIPITOR [Concomitant]
  9. TERAZOSIN [Concomitant]
  10. NIACIN [Concomitant]
  11. CITALOPRAM [Concomitant]
  12. CENTRUM SILVER PREVENTIONS [Concomitant]
  13. RANEXA [Concomitant]
  14. MORPHINE [Concomitant]
  15. LORTAB [Concomitant]

REACTIONS (4)
  - Disorientation [None]
  - Mental status changes [None]
  - Headache [None]
  - Self-injurious ideation [None]
